FAERS Safety Report 5106322-3 (Version None)
Quarter: 2006Q3

REPORT INFORMATION
  Report Type: 
  Country: None (occurrence: None)
  Receive Date: 20060918
  Receipt Date: 20060318
  Transmission Date: 20061208
  Serious: Yes (Other)
  Sender: FDA-Public Use
  Company Number: GBWYE480217MAR06

PATIENT
  Sex: Female
  Weight: 62.7 kg

DRUGS (3)
  1. ENBREL [Suspect]
     Indication: ANKYLOSING SPONDYLITIS
     Route: 058
     Dates: start: 20050228, end: 20051101
  2. ENBREL [Suspect]
     Route: 058
     Dates: start: 20051101, end: 20060213
  3. ENBREL [Suspect]
     Route: 058
     Dates: start: 20060301, end: 20060309

REACTIONS (4)
  - DIZZINESS [None]
  - FEELING ABNORMAL [None]
  - PARAESTHESIA [None]
  - VISUAL DISTURBANCE [None]
